FAERS Safety Report 12634381 (Version 5)
Quarter: 2016Q4

REPORT INFORMATION
  Report Type: Spontaneous
  Country: IT (occurrence: IT)
  Receive Date: 20160809
  Receipt Date: 20161123
  Transmission Date: 20170207
  Serious: Yes (Hospitalization, Other)
  Sender: FDA-Public Use
  Company Number: IT-TEVA-683094ISR

PATIENT
  Age: 62 Year
  Sex: Male

DRUGS (2)
  1. PREGABALIN. [Suspect]
     Active Substance: PREGABALIN
  2. QUETIAPINE. [Suspect]
     Active Substance: QUETIAPINE

REACTIONS (3)
  - Electrocardiogram abnormal [Recovered/Resolved]
  - Pneumonia [Recovered/Resolved]
  - Acute myocardial infarction [Recovered/Resolved]
